FAERS Safety Report 7523176-6 (Version None)
Quarter: 2011Q2

REPORT INFORMATION
  Report Type: 
  Country: None (occurrence: None)
  Receive Date: 20110603
  Receipt Date: 20110524
  Transmission Date: 20111010
  Serious: Yes (Hospitalization)
  Sender: FDA-Public Use
  Company Number: US-CELGENEUS-163-21880-09101356

PATIENT
  Sex: Male
  Weight: 87.168 kg

DRUGS (5)
  1. DOXIL [Suspect]
     Indication: MULTIPLE MYELOMA
     Dosage: 30 MILLIGRAM/SQ. METER
     Route: 065
     Dates: start: 20091010, end: 20091010
  2. REVLIMID [Suspect]
     Indication: MULTIPLE MYELOMA
     Dosage: 25 MILLIGRAM
     Route: 048
     Dates: start: 20091006, end: 20091014
  3. COUMADIN [Concomitant]
     Dosage: 7.5 MILLIGRAM
     Route: 065
  4. VELCADE [Suspect]
     Indication: MULTIPLE MYELOMA
     Dosage: 1.3 MILLIGRAM/SQ. METER
     Route: 051
     Dates: start: 20091006, end: 20091014
  5. DEXAMETHASONE [Suspect]
     Indication: MULTIPLE MYELOMA
     Dosage: 20 MILLIGRAM
     Route: 048
     Dates: start: 20091001

REACTIONS (8)
  - URINE OUTPUT DECREASED [None]
  - LIPASE INCREASED [None]
  - DYSURIA [None]
  - PAIN [None]
  - PAIN IN EXTREMITY [None]
  - BLOOD AMYLASE INCREASED [None]
  - ABDOMINAL PAIN UPPER [None]
  - CONSTIPATION [None]
